FAERS Safety Report 13172558 (Version 6)
Quarter: 2017Q3

REPORT INFORMATION
  Report Type: Report from Study
  Country: MX (occurrence: MX)
  Receive Date: 20170131
  Receipt Date: 20170707
  Transmission Date: 20171127
  Serious: Yes (Hospitalization)
  Sender: FDA-Public Use
  Company Number: MX-ACTELION-A-NJ2017-149275

PATIENT
  Age: 82 Year
  Sex: Female

DRUGS (5)
  1. VENTAVIS [Suspect]
     Active Substance: ILOPROST
     Indication: PULMONARY HYPERTENSION
     Dosage: 1 DF, Q8HR
     Route: 055
     Dates: start: 200901, end: 200901
  2. PREGABALIN. [Concomitant]
     Active Substance: PREGABALIN
  3. VENTAVIS [Suspect]
     Active Substance: ILOPROST
     Dosage: 1 DF, BID
     Route: 055
     Dates: start: 200901
  4. TERAZOSIN [Suspect]
     Active Substance: TERAZOSIN\TERAZOSIN HYDROCHLORIDE
     Indication: PRODUCT USED FOR UNKNOWN INDICATION
     Dosage: UNK
     Route: 065
     Dates: start: 2011
  5. XARELTO [Concomitant]
     Active Substance: RIVAROXABAN
     Indication: PRODUCT USED FOR UNKNOWN INDICATION
     Dosage: UNK
     Route: 065
     Dates: start: 201610

REACTIONS (13)
  - Pollakiuria [Not Recovered/Not Resolved]
  - Intentional product use issue [Unknown]
  - Prescribed underdose [Unknown]
  - Blood uric acid increased [Recovered/Resolved]
  - Dyspepsia [Recovered/Resolved]
  - Influenza [Not Recovered/Not Resolved]
  - Poor quality sleep [Not Recovered/Not Resolved]
  - Insomnia [Recovered/Resolved]
  - Diarrhoea [Recovered/Resolved]
  - Oropharyngeal discomfort [Not Recovered/Not Resolved]
  - Abdominal discomfort [Recovered/Resolved]
  - Product use issue [Unknown]
  - Cough [Not Recovered/Not Resolved]

NARRATIVE: CASE EVENT DATE: 2015
